FAERS Safety Report 7301926-1 (Version None)
Quarter: 2011Q1

REPORT INFORMATION
  Report Type: 
  Country: None (occurrence: None)
  Receive Date: 20110218
  Receipt Date: 20110209
  Transmission Date: 20110831
  Serious: Yes (Hospitalization, Other)
  Sender: FDA-Public Use
  Company Number: SE-ABBOTT-09P-150-0609628-03

PATIENT
  Sex: Female
  Weight: 107 kg

DRUGS (13)
  1. KETOPROFEN [Concomitant]
     Indication: MUSCULOSKELETAL STIFFNESS
  2. ARTROX [Concomitant]
     Indication: OSTEOARTHRITIS
     Route: 048
     Dates: start: 20080228
  3. METHOTREXATE [Concomitant]
     Dosage: 2.5 MGX4=10MG
     Dates: start: 20050601
  4. LANSOPRAZOLE [Concomitant]
     Route: 048
     Dates: start: 20061208
  5. FELODIPINE [Concomitant]
     Indication: HYPERTENSION
     Route: 048
     Dates: start: 20070419
  6. HUMIRA [Suspect]
     Indication: RHEUMATOID ARTHRITIS
     Route: 058
     Dates: start: 20030326, end: 20091105
  7. LANSOPRAZOLE [Concomitant]
     Indication: GASTRITIS PROPHYLAXIS
     Route: 048
     Dates: start: 20010405
  8. KETOPROFEN [Concomitant]
     Indication: PAIN
     Route: 048
     Dates: start: 20030109
  9. FOLIC ACID [Concomitant]
     Indication: VITAMIN SUPPLEMENTATION
     Route: 048
     Dates: start: 20010405
  10. DIMETIKON [Concomitant]
     Indication: FLATULENCE
     Route: 048
     Dates: start: 20040704
  11. METHOTREXATE [Concomitant]
     Indication: RHEUMATOID ARTHRITIS
     Route: 048
     Dates: start: 20030326
  12. PARACETAMOL [Concomitant]
     Indication: PAIN
     Route: 048
     Dates: start: 20010405
  13. ATENOLOL [Concomitant]
     Indication: HYPERTENSION
     Route: 048
     Dates: start: 20070419

REACTIONS (1)
  - RENAL CELL CARCINOMA [None]
